FAERS Safety Report 19640130 (Version 3)
Quarter: 2021Q4

REPORT INFORMATION
  Report Type: Spontaneous
  Country: US (occurrence: US)
  Receive Date: 20210730
  Receipt Date: 20211111
  Transmission Date: 20220303
  Serious: No
  Sender: FDA-Public Use
  Company Number: US-PFIZER INC-2021887646

PATIENT
  Age: 85 Year
  Sex: Male
  Weight: 89 kg

DRUGS (6)
  1. VYNDAMAX [Suspect]
     Active Substance: TAFAMIDIS
     Indication: Cardiac amyloidosis
     Dosage: 61 MG, 1X/DAY
     Route: 048
     Dates: start: 202105
  2. NEXIUM [Suspect]
     Active Substance: ESOMEPRAZOLE MAGNESIUM
     Dosage: UNK
     Route: 048
  3. AMIODARONE [Concomitant]
     Active Substance: AMIODARONE
     Dosage: UNK
  4. METOPROLOL [Concomitant]
     Active Substance: METOPROLOL
     Dosage: UNK
  5. TORSEMIDE [Concomitant]
     Active Substance: TORSEMIDE
     Dosage: UNK
  6. PROSCAR [Concomitant]
     Active Substance: FINASTERIDE
     Dosage: UNK

REACTIONS (2)
  - Productive cough [Unknown]
  - Blood creatinine increased [Unknown]

NARRATIVE: CASE EVENT DATE: 20210601
